FAERS Safety Report 6687425-9 (Version None)
Quarter: 2010Q2

REPORT INFORMATION
  Report Type: 
  Country: None (occurrence: None)
  Receive Date: 20100415
  Receipt Date: 20100406
  Transmission Date: 20101027
  Serious: Yes (Other)
  Sender: FDA-Public Use
  Company Number: 2010AL002085

PATIENT
  Age: 89 Year
  Sex: Female

DRUGS (1)
  1. ACYCLOVIR [Suspect]
     Indication: HERPES ZOSTER
     Dosage: 800 MG; QD;

REACTIONS (4)
  - CONFUSIONAL STATE [None]
  - PALLOR [None]
  - RASH [None]
  - SOMNOLENCE [None]
